FAERS Safety Report 7272729 (Version 4)
Quarter: 2014Q1

REPORT INFORMATION
  Report Type: Spontaneous
  Country: US (occurrence: US)
  Receive Date: 20100208
  Receipt Date: 20140106
  Transmission Date: 20141002
  Serious: Yes (Hospitalization, Other)
  Sender: FDA-Public Use
  Company Number: US-BAYER-201012903NA

PATIENT
  Age: 23 Year
  Sex: Female
  Weight: 68 kg

DRUGS (30)
  1. YAZ [Suspect]
     Indication: PREMENSTRUAL SYNDROME
     Dosage: UNK
     Route: 048
     Dates: start: 200706, end: 200911
  2. YAZ [Suspect]
     Indication: PREMENSTRUAL SYNDROME
     Dosage: UNK
     Dates: start: 2000
  3. YASMIN [Suspect]
     Indication: PREMENSTRUAL SYNDROME
     Dosage: UNK
     Route: 048
     Dates: start: 200706, end: 200911
  4. YASMIN [Suspect]
     Indication: PREMENSTRUAL SYNDROME
     Dosage: UNK
     Dates: start: 2000
  5. NAPROXEN [Concomitant]
     Dates: start: 2000
  6. OXYCODONE/APAP [Concomitant]
     Dates: start: 2000
  7. IRON IN OTHER COMBINATIONS [Concomitant]
     Dates: start: 2000
  8. PHENAZOPYRIDINE [Concomitant]
     Dates: start: 2000
  9. AMOXICILLIN W/CLAVULANATE POTASSIUM [Concomitant]
     Dates: start: 2000
  10. CHLORPHENAMINE MALEATE [Concomitant]
     Dates: start: 2000
  11. CLINDAMYCIN [Concomitant]
     Dates: start: 2000
  12. SUPHEDRINE [PSEUDOEPHEDRINE HYDROCHLORIDE] [Concomitant]
     Dates: start: 2000
  13. CITALOPRAM [Concomitant]
     Dates: start: 2000
  14. PREDNISONE [Concomitant]
     Dates: start: 2000
  15. PROMETHAZINE [Concomitant]
     Dates: start: 2000
  16. OPIUM ALKALOIDS AND DERIVATIVES [Concomitant]
     Dates: start: 2000
  17. GRIS-PEG [Concomitant]
     Dates: start: 2000
  18. AMOXICILLIN [Concomitant]
     Indication: PHARYNGITIS STREPTOCOCCAL
     Dates: start: 2000
  19. AMOXICILLIN [Concomitant]
     Indication: EAR INFECTION
  20. AMOXICILLIN [Concomitant]
     Indication: POSTOPERATIVE CARE
  21. OTOLOGICALS [Concomitant]
     Dates: start: 2000
  22. CIPRODEX [CIPROFLOXACIN,DEXAMETHASONE] [Concomitant]
     Dates: start: 2000
  23. VITAMIN C [Concomitant]
     Dates: start: 2009, end: 2010
  24. EXCEDRIN MIGRAINE [Concomitant]
  25. IBUPROFEN [Concomitant]
  26. LORTAB [Concomitant]
     Indication: ARTHRALGIA
     Dates: start: 2008
  27. PERCOCET [Concomitant]
     Indication: ARTHRALGIA
     Dates: start: 2008
  28. VICODIN [Concomitant]
     Indication: PROCEDURAL PAIN
     Dates: start: 2008
  29. DARVOCET [Concomitant]
     Indication: PROCEDURAL PAIN
     Dates: start: 2007
  30. IRON TABLETS [Concomitant]
     Indication: ANAEMIA
     Route: 048

REACTIONS (15)
  - Gallbladder disorder [None]
  - Cholecystitis chronic [None]
  - Cholelithiasis [None]
  - Pancreatitis [None]
  - Biliary colic [None]
  - Nausea [None]
  - Biliary dilatation [None]
  - Abdominal pain upper [None]
  - Abdominal pain upper [None]
  - Injury [None]
  - Pain [None]
  - Gallbladder cholesterolosis [None]
  - Emotional distress [None]
  - Anhedonia [None]
  - Gallbladder cholesterolosis [None]
